FAERS Safety Report 13655024 (Version 1)
Quarter: 2017Q2

REPORT INFORMATION
  Report Type: Spontaneous
  Country: JP (occurrence: JP)
  Receive Date: 20170615
  Receipt Date: 20170615
  Transmission Date: 20170830
  Serious: Yes (Other)
  Sender: FDA-Public Use
  Company Number: JP-PFIZER INC-2017104508

PATIENT
  Age: 66 Year
  Sex: Female
  Weight: 36.3 kg

DRUGS (1)
  1. EFFEXOR [Suspect]
     Active Substance: VENLAFAXINE HYDROCHLORIDE
     Indication: DEPRESSION
     Dosage: 37.5 MG, DAILY
     Route: 048
     Dates: start: 20170206, end: 20170219

REACTIONS (5)
  - Paranoia [Recovered/Resolved]
  - Photosensitivity reaction [Recovered/Resolved]
  - Hallucination [Recovered/Resolved]
  - Erythema [Recovering/Resolving]
  - Condition aggravated [Recovered/Resolved]

NARRATIVE: CASE EVENT DATE: 2017
